FAERS Safety Report 9725297 (Version 2)
Quarter: 2014Q1

REPORT INFORMATION
  Report Type: Spontaneous
  Country: BR (occurrence: BR)
  Receive Date: 20131203
  Receipt Date: 20140110
  Transmission Date: 20141002
  Serious: Yes (Other)
  Sender: FDA-Public Use
  Company Number: BR-ACCORD-020511

PATIENT
  Age: 72 Year
  Sex: Female
  Weight: 83 kg

DRUGS (11)
  1. PACLITAXEL/PACLITAXEL LIPOSOME [Suspect]
     Indication: CHEMOTHERAPY
     Dosage: ON 29-JUN-2013, PATIENT RECEIVED 152.8 MG.
     Route: 042
     Dates: start: 20130504, end: 20130518
  2. MIDAZOLAM [Concomitant]
     Route: 048
     Dates: start: 20130517, end: 20130617
  3. ONDANSETRON [Concomitant]
     Route: 042
     Dates: start: 20130518, end: 20130518
  4. HYDROCHLOROTHIAZIDE [Concomitant]
     Route: 048
  5. DEXAMETHASONE [Concomitant]
     Route: 042
     Dates: start: 20130518, end: 20130518
  6. RANITIDINE [Concomitant]
     Route: 042
     Dates: start: 20130518, end: 20130518
  7. DIPHENHYDRAMINE [Concomitant]
     Route: 042
     Dates: start: 20130518, end: 20130518
  8. DEXAMETHASONE [Concomitant]
     Route: 048
     Dates: start: 20130516, end: 20130701
  9. BROMOPRIDE [Concomitant]
     Route: 048
     Dates: start: 20130517, end: 20130606
  10. ATENOLOL/ATENOLOL HYDROCHLORIDE [Concomitant]
     Route: 048
  11. LOSARTAN [Concomitant]
     Route: 048

REACTIONS (7)
  - Back pain [Recovered/Resolved]
  - Chest discomfort [Recovered/Resolved]
  - Paraesthesia [Recovered/Resolved]
  - Flushing [Recovered/Resolved]
  - Neuropathy peripheral [Unknown]
  - Dyspnoea [Recovered/Resolved]
  - Hypersensitivity [Recovered/Resolved]
